FAERS Safety Report 4524797-5 (Version None)
Quarter: 2004Q4

REPORT INFORMATION
  Report Type: 
  Country: None (occurrence: None)
  Receive Date: 20041208
  Receipt Date: 20041104
  Transmission Date: 20050328
  Serious: Yes (Hospitalization)
  Sender: FDA-Public Use
  Company Number: 2004-USFACT00054

PATIENT
  Age: 88 Year
  Sex: Female
  Weight: 77.1 kg

DRUGS (1)
  1. FACTIVE [Suspect]
     Indication: RESPIRATORY TRACT INFECTION BACTERIAL
     Dosage: QD, ORAL
     Route: 048
     Dates: start: 20040927, end: 20040928

REACTIONS (1)
  - VAGINAL HAEMORRHAGE [None]
